FAERS Safety Report 19898869 (Version 1)
Quarter: 2021Q3

REPORT INFORMATION
  Report Type: Spontaneous
  Country: US (occurrence: US)
  Receive Date: 20210929
  Receipt Date: 20210929
  Transmission Date: 20211014
  Serious: Yes (Other)
  Sender: FDA-Public Use
  Company Number: None

PATIENT
  Age: 67 Year
  Sex: Male

DRUGS (1)
  1. BAMLANIVIMAB /ETESEVIMAB 100ML PREMADE [Suspect]
     Active Substance: BAMLANIVIMAB\ETESEVIMAB
     Indication: SARS-COV-2 TEST POSITIVE
     Dosage: ?          OTHER DOSE:100 ML IVPB;?
     Route: 042

REACTIONS (7)
  - Vision blurred [None]
  - Ear pain [None]
  - Vascular pain [None]
  - Chest discomfort [None]
  - Headache [None]
  - Blood pressure increased [None]
  - Head discomfort [None]

NARRATIVE: CASE EVENT DATE: 20210923
